FAERS Safety Report 9111719 (Version 1)
Quarter: 2013Q1

REPORT INFORMATION
  Report Type: Spontaneous
  Country: US (occurrence: US)
  Receive Date: 20130219
  Receipt Date: 20130219
  Transmission Date: 20140127
  Serious: No
  Sender: FDA-Public Use
  Company Number: US-BRISTOL-MYERS SQUIBB COMPANY-16999211

PATIENT
  Age: 51 Year
  Sex: Female
  Weight: 74.83 kg

DRUGS (1)
  1. ORENCIA [Suspect]
     Indication: RHEUMATOID ARTHRITIS
     Dosage: LAST DOSE: 21SEP2012.
     Route: 058
     Dates: start: 20120906

REACTIONS (1)
  - Pruritus [Unknown]
